FAERS Safety Report 15103610 (Version 1)
Quarter: 2018Q2

REPORT INFORMATION
  Report Type: Spontaneous
  Country: US (occurrence: US)
  Receive Date: 20180611
  Receipt Date: 20180611
  Transmission Date: 20180711
  Serious: Yes (Hospitalization)
  Sender: FDA-Public Use
  Company Number: None

PATIENT
  Age: 52 Year
  Sex: Male
  Weight: 77.7 kg

DRUGS (19)
  1. MULTIVITAMINS [Concomitant]
     Active Substance: VITAMINS
  2. METOPROLOL. [Concomitant]
     Active Substance: METOPROLOL
  3. SENNA [Concomitant]
     Active Substance: SENNA LEAF\SENNOSIDES\SENNOSIDES A AND B
  4. MESALAMINE. [Concomitant]
     Active Substance: MESALAMINE
  5. MIRALAX [Concomitant]
     Active Substance: POLYETHYLENE GLYCOL 3350
  6. OLANZAPINE. [Concomitant]
     Active Substance: OLANZAPINE
  7. LEE011, RIBOCICLIB [Suspect]
     Active Substance: RIBOCICLIB
     Dosage: 600 MG DAY 8-14 PO
     Route: 048
     Dates: start: 20180404, end: 20180410
  8. LIDODERM [Concomitant]
     Active Substance: LIDOCAINE
  9. LEVOFLOXACIN. [Concomitant]
     Active Substance: LEVOFLOXACIN
  10. PERCOCET [Concomitant]
     Active Substance: ACETAMINOPHEN\OXYCODONE HYDROCHLORIDE
  11. MIRTAZAPINE. [Concomitant]
     Active Substance: MIRTAZAPINE
  12. VITAMIN D3 [Concomitant]
     Active Substance: CHOLECALCIFEROL
  13. GABAPENTIN. [Concomitant]
     Active Substance: GABAPENTIN
  14. GEMCITABINE [Suspect]
     Active Substance: GEMCITABINE\GEMCITABINE HYDROCHLORIDE
     Route: 042
     Dates: start: 20180328
  15. ONDANSETRON [Concomitant]
     Active Substance: ONDANSETRON
  16. COMPAZINE [Concomitant]
     Active Substance: PROCHLORPERAZINE MALEATE
  17. OMEPRAZOLE. [Concomitant]
     Active Substance: OMEPRAZOLE
  18. ATORVASTATIN [Concomitant]
     Active Substance: ATORVASTATIN
  19. GEMCITABINE [Suspect]
     Active Substance: GEMCITABINE\GEMCITABINE HYDROCHLORIDE
     Dates: start: 20180404

REACTIONS (6)
  - Spinal cord compression [None]
  - Disease progression [None]
  - Paraparesis [None]
  - Sensory loss [None]
  - Urinary retention [None]
  - Anal sphincter atony [None]

NARRATIVE: CASE EVENT DATE: 20180519
